FAERS Safety Report 24575947 (Version 1)
Quarter: 2024Q4

REPORT INFORMATION
  Report Type: Spontaneous
  Country: US (occurrence: None)
  Receive Date: 20241102
  Receipt Date: 20241102
  Transmission Date: 20250114
  Serious: Yes (Life-Threatening, Hospitalization)
  Sender: Public
  Company Number: None

PATIENT
  Age: 45 Year
  Sex: Female
  Weight: 57.6 kg

DRUGS (8)
  1. ENTRESTO [Suspect]
     Active Substance: SACUBITRIL\VALSARTAN
     Dates: start: 20241015, end: 20241017
  2. GABAPENTIN [Concomitant]
     Active Substance: GABAPENTIN
  3. Jardine [Concomitant]
  4. CARVEDILOL [Concomitant]
     Active Substance: CARVEDILOL
  5. FUROSEMIDE [Concomitant]
     Active Substance: FUROSEMIDE
  6. LEVOTHYROXINE [Concomitant]
     Active Substance: LEVOTHYROXINE
  7. PANTOPRAZOLE [Concomitant]
     Active Substance: PANTOPRAZOLE
  8. ARIPIPRAZOLE [Concomitant]
     Active Substance: ARIPIPRAZOLE

REACTIONS (9)
  - Cardiac failure congestive [None]
  - Feeling abnormal [None]
  - Swelling [None]
  - Dysmorphism [None]
  - Swollen tongue [None]
  - Speech disorder [None]
  - Asphyxia [None]
  - Near death experience [None]
  - Product complaint [None]

NARRATIVE: CASE EVENT DATE: 20241022
